FAERS Safety Report 16909663 (Version 1)
Quarter: 2019Q4

REPORT INFORMATION
  Report Type: Spontaneous
  Country: RO (occurrence: RO)
  Receive Date: 20191011
  Receipt Date: 20191011
  Transmission Date: 20200122
  Serious: Yes (Other)
  Sender: FDA-Public Use
  Company Number: RO-ASTRAZENECA-2019SF43242

PATIENT
  Age: 51 Year
  Sex: Male

DRUGS (2)
  1. BRILIQUE [Suspect]
     Active Substance: TICAGRELOR
     Indication: ACUTE CORONARY SYNDROME
     Route: 048
     Dates: start: 201905
  2. BRILIQUE [Suspect]
     Active Substance: TICAGRELOR
     Indication: ACUTE CORONARY SYNDROME
     Route: 048
     Dates: end: 201908

REACTIONS (4)
  - Gingival bleeding [Recovered/Resolved]
  - Haemoglobin decreased [Unknown]
  - Colon cancer [Unknown]
  - Pain in jaw [Unknown]

NARRATIVE: CASE EVENT DATE: 201908
